FAERS Safety Report 4644478-7 (Version None)
Quarter: 2005Q2

REPORT INFORMATION
  Report Type: 
  Country: None (occurrence: None)
  Receive Date: 20050331
  Receipt Date: 20050113
  Transmission Date: 20051028
  Serious: No
  Sender: FDA-Public Use
  Company Number: 05P-163-0285079-00

PATIENT
  Age: 73 Year
  Sex: Female
  Weight: 74.8435 kg

DRUGS (8)
  1. HUMIRA [Suspect]
     Indication: RHEUMATOID ARTHRITIS
     Dosage: 40 MG, 1 IN 2 WK, SUBCUTANEOUS
     Route: 058
     Dates: start: 20030101
  2. FOLIC ACID [Concomitant]
  3. METHOTREXATE SODIUM [Concomitant]
  4. MULTI-VITAMINS [Concomitant]
  5. CALCIUM GLUCONATE [Concomitant]
  6. NAPROXEN SODIUM [Concomitant]
  7. PREDNISONE [Concomitant]
  8. LATANOPROST [Concomitant]

REACTIONS (3)
  - HERPES SIMPLEX [None]
  - MACULAR DEGENERATION [None]
  - NASOPHARYNGITIS [None]
